FAERS Safety Report 7428388-8 (Version None)
Quarter: 2011Q2

REPORT INFORMATION
  Report Type: 
  Country: None (occurrence: None)
  Receive Date: 20110421
  Receipt Date: 20110413
  Transmission Date: 20111010
  Serious: Yes (Other)
  Sender: FDA-Public Use
  Company Number: US-NOVOPROD-324835

PATIENT
  Sex: Male
  Weight: 100.23 kg

DRUGS (5)
  1. XANAX [Concomitant]
     Indication: ANXIETY
     Dosage: 1 MG, QID
  2. VICTOZA [Suspect]
     Indication: TYPE 2 DIABETES MELLITUS
     Dosage: 0.6 MG, QD
     Route: 058
     Dates: start: 20110219, end: 20110406
  3. GLIMEPIRIDE [Concomitant]
     Indication: TYPE 2 DIABETES MELLITUS
     Dosage: 4 MG, QD
  4. METFORMIN [Concomitant]
     Indication: TYPE 2 DIABETES MELLITUS
     Dosage: 1000 MG, QD
  5. VICTOZA [Suspect]
     Indication: GLYCOSYLATED HAEMOGLOBIN INCREASED

REACTIONS (6)
  - BACK PAIN [None]
  - ANXIETY [None]
  - ERYTHEMA [None]
  - PRURITUS [None]
  - CHEST PAIN [None]
  - HYPOAESTHESIA [None]
